FAERS Safety Report 5073104-0 (Version None)
Quarter: 2006Q3

REPORT INFORMATION
  Report Type: 
  Country: None (occurrence: None)
  Receive Date: 20060802
  Receipt Date: 20060721
  Transmission Date: 20061208
  Serious: Yes (Hospitalization)
  Sender: FDA-Public Use
  Company Number: ALA_0006_2006

PATIENT
  Age: 29 Year
  Sex: Female

DRUGS (6)
  1. MESALAMINE [Suspect]
     Indication: COLITIS ULCERATIVE
     Dosage: DF
  2. MESALAMINE [Suspect]
     Indication: DIARRHOEA HAEMORRHAGIC
     Dosage: DF
  3. MESALAMINE [Suspect]
     Indication: COLITIS ULCERATIVE
     Dosage: DF
  4. MESALAMINE [Suspect]
     Indication: DIARRHOEA HAEMORRHAGIC
     Dosage: DF
  5. STEROIDS [Concomitant]
  6. LOPERAMIDE [Concomitant]

REACTIONS (9)
  - COLITIS ULCERATIVE [None]
  - CONDITION AGGRAVATED [None]
  - DILATATION VENTRICULAR [None]
  - DIZZINESS [None]
  - HYPOTENSION [None]
  - NODAL RHYTHM [None]
  - SINUS ARREST [None]
  - SINUS BRADYCARDIA [None]
  - VENTRICULAR DYSFUNCTION [None]
